FAERS Safety Report 7171058-4 (Version None)
Quarter: 2010Q4

REPORT INFORMATION
  Report Type: 
  Country: None (occurrence: None)
  Receive Date: 20101217
  Receipt Date: 20101215
  Transmission Date: 20110411
  Serious: Yes (Life-Threatening, Hospitalization)
  Sender: FDA-Public Use
  Company Number: CHPA2010GB19119

PATIENT
  Age: 68 Year
  Sex: Male
  Weight: 91 kg

DRUGS (1)
  1. IBUPROFEN [Suspect]
     Indication: OSTEOARTHRITIS
     Dosage: 400 MG, ONCE EVERY 3 DAYS
     Route: 048
     Dates: start: 20090812, end: 20090914

REACTIONS (1)
  - CEREBROVASCULAR ACCIDENT [None]
